FAERS Safety Report 12610644 (Version 3)
Quarter: 2020Q4

REPORT INFORMATION
  Report Type: Spontaneous
  Country: US (occurrence: US)
  Receive Date: 20160801
  Receipt Date: 20201230
  Transmission Date: 20210113
  Serious: No
  Sender: FDA-Public Use
  Company Number: US-ELI_LILLY_AND_COMPANY-US201607011429

PATIENT
  Age: 36 Year
  Sex: Female

DRUGS (2)
  1. HUMALOG [Suspect]
     Active Substance: INSULIN LISPRO
     Indication: GESTATIONAL DIABETES
  2. HUMALOG [Suspect]
     Active Substance: INSULIN LISPRO
     Indication: INSULIN RESISTANCE
     Dosage: UNK UNK, UNKNOWN
     Route: 058

REACTIONS (3)
  - Injection site bruising [Recovered/Resolved]
  - Maternal exposure during pregnancy [Recovered/Resolved]
  - Blood pressure increased [Recovered/Resolved]
